FAERS Safety Report 9006956 (Version 1)
Quarter: 2013Q1

REPORT INFORMATION
  Report Type: Spontaneous
  Country: JP (occurrence: JP)
  Receive Date: 20130110
  Receipt Date: 20130110
  Transmission Date: 20140127
  Serious: Yes (Other)
  Sender: FDA-Public Use
  Company Number: JP-TEVA-379108ISR

PATIENT
  Age: 47 Year
  Sex: Female

DRUGS (2)
  1. CISPLATIN [Suspect]
     Indication: CHEMOTHERAPY
     Dosage: 50 MG/M2 DAILY;
  2. PACLITAXEL [Suspect]
     Indication: CERVIX CARCINOMA STAGE II
     Dosage: 175 MG/M2 DAILY;

REACTIONS (5)
  - Oesophagitis [Unknown]
  - Leukopenia [Unknown]
  - Septic shock [Unknown]
  - Nausea [Unknown]
  - Vomiting [Unknown]
